FAERS Safety Report 13878343 (Version 1)
Quarter: 2017Q3

REPORT INFORMATION
  Report Type: Spontaneous
  Country: US (occurrence: US)
  Receive Date: 20170817
  Receipt Date: 20170817
  Transmission Date: 20171127
  Serious: No
  Sender: FDA-Public Use
  Company Number: US-ROCHE-1918883

PATIENT
  Age: 56 Year
  Sex: Female

DRUGS (1)
  1. PEGASYS [Suspect]
     Active Substance: PEGINTERFERON ALFA-2A
     Indication: EOSINOPHILIC LEUKAEMIA
     Route: 065

REACTIONS (6)
  - Headache [Unknown]
  - Off label use [Unknown]
  - Nausea [Unknown]
  - Haemoptysis [Unknown]
  - Injection site reaction [Unknown]
  - Pyrexia [Recovered/Resolved]
